FAERS Safety Report 16535971 (Version 2)
Quarter: 2023Q2

REPORT INFORMATION
  Report Type: Other
  Country: GB (occurrence: None)
  Receive Date: 20190705
  Receipt Date: 20230523
  Transmission Date: 20230721
  Serious: Yes (Other)
  Sender: FDA-Public Use
  Company Number: None

PATIENT
  Age: 47 Year
  Sex: Female
  Weight: 75 kg

DRUGS (1)
  1. TOCILIZUMAB [Suspect]
     Active Substance: TOCILIZUMAB
     Indication: Juvenile idiopathic arthritis
     Dosage: 162MG/0.9ML FOR INJECTION PEN
     Route: 042

REACTIONS (4)
  - Rash [Recovering/Resolving]
  - Dizziness [Recovering/Resolving]
  - Paraesthesia [Recovering/Resolving]
  - Hypersensitivity [Unknown]

NARRATIVE: CASE EVENT DATE: 20190605
